FAERS Safety Report 10160527 (Version 1)
Quarter: 2014Q2

REPORT INFORMATION
  Report Type: Report from Study
  Country: US (occurrence: US)
  Receive Date: 20140508
  Receipt Date: 20140508
  Transmission Date: 20141212
  Serious: Yes (Hospitalization, Other)
  Sender: FDA-Public Use
  Company Number: US-JNJFOC-20140501987

PATIENT
  Sex: Female
  Weight: 53.52 kg

DRUGS (9)
  1. SIMPONI [Suspect]
     Indication: RHEUMATOID ARTHRITIS
     Dosage: EVERY 2 OR 3 MONTHS STARTED GOLIMUMAB 4-5 YEARS AGO
     Route: 058
  2. SIMPONI [Suspect]
     Indication: RHEUMATOID ARTHRITIS
     Route: 058
     Dates: start: 2013
  3. METHOTREXATE [Concomitant]
     Indication: RHEUMATOID ARTHRITIS
     Dosage: EVERY 2 OR 3 MONTHS
     Route: 058
  4. LIPITOR [Concomitant]
     Indication: BLOOD CHOLESTEROL INCREASED
     Route: 048
  5. DIOVAN [Concomitant]
     Indication: HYPERTENSION
     Route: 048
  6. TOPROL [Concomitant]
     Indication: HEART RATE INCREASED
     Route: 048
  7. TIMOLOL [Concomitant]
     Indication: MACULAR DEGENERATION
     Route: 031
  8. PRESERVISION AREDS SOFT GEL [Concomitant]
     Indication: MACULAR DEGENERATION
     Route: 031
  9. OMEPRAZOLE [Concomitant]
     Indication: OESOPHAGEAL DISORDER
     Route: 065

REACTIONS (5)
  - Dehydration [Recovered/Resolved]
  - Pneumonia [Recovered/Resolved]
  - Osteoarthritis [Not Recovered/Not Resolved]
  - Spinal disorder [Not Recovered/Not Resolved]
  - Cheilitis [Not Recovered/Not Resolved]
